FAERS Safety Report 11173782 (Version 1)
Quarter: 2015Q2

REPORT INFORMATION
  Report Type: Spontaneous
  Country: US (occurrence: US)
  Receive Date: 20150609
  Receipt Date: 20150609
  Transmission Date: 20150821
  Serious: Yes (Other)
  Sender: FDA-Public Use
  Company Number: US-JNJCP-30000286800

PATIENT
  Sex: Female

DRUGS (1)
  1. NEUTROGENA OIL FREE ACNE WASH [Suspect]
     Active Substance: SALICYLIC ACID
     Indication: PRODUCT USED FOR UNKNOWN INDICATION
     Route: 061

REACTIONS (5)
  - Vision blurred [Recovered/Resolved]
  - Eye pain [Unknown]
  - Accidental exposure to product [Unknown]
  - Corneal abrasion [Unknown]
  - Incorrect route of drug administration [None]

NARRATIVE: CASE EVENT DATE: 20150518
